FAERS Safety Report 8951162 (Version 1)
Quarter: 2012Q4

REPORT INFORMATION
  Report Type: 
  Country: SE (occurrence: SE)
  Receive Date: 20121207
  Receipt Date: 20121207
  Transmission Date: 20130627
  Serious: Yes (Other)
  Sender: FDA-Public Use
  Company Number: SE-BAYER-2012-125192

PATIENT
  Age: 65 Year
  Sex: Female

DRUGS (4)
  1. CIPROXIN [Suspect]
     Indication: RESPIRATORY INFECTION
  2. AMIMOX [Concomitant]
     Indication: RESPIRATORY TRACT INFECTION
  3. TAMOXIFEN [Concomitant]
  4. REPLENS [Concomitant]

REACTIONS (3)
  - Streptococcal infection [None]
  - Vulvovaginal erythema [None]
  - Vulvovaginal pruritus [None]
